FAERS Safety Report 10076074 (Version 1)
Quarter: 2014Q2

REPORT INFORMATION
  Report Type: Spontaneous
  Country: US (occurrence: US)
  Receive Date: 20140414
  Receipt Date: 20140414
  Transmission Date: 20141212
  Serious: Yes (Hospitalization)
  Sender: FDA-Public Use
  Company Number: US-PFIZER INC-2014100602

PATIENT
  Age: 68 Year
  Sex: Male
  Weight: 89.34 kg

DRUGS (3)
  1. VIAGRA [Suspect]
     Indication: ERECTILE DYSFUNCTION
     Dosage: 100 MG, AS NEEDED
  2. MICARDIS [Concomitant]
     Indication: HYPERTENSION
     Dosage: UNK, DAILY
  3. OXYCODONE/ACETAMINOPHEN [Concomitant]
     Dosage: 10MG OXYCODONE /325 MG ACETAMINOPHEN, 3X/DAY

REACTIONS (1)
  - Chest pain [Recovered/Resolved]
